FAERS Safety Report 24188688 (Version 1)
Quarter: 2024Q3

REPORT INFORMATION
  Report Type: Spontaneous
  Country: US (occurrence: US)
  Receive Date: 20240808
  Receipt Date: 20240808
  Transmission Date: 20241016
  Serious: No
  Sender: OTSUKA
  Company Number: US-OTSUKA-2024_014760

PATIENT
  Sex: Male

DRUGS (1)
  1. ABILIFY MAINTENA [Suspect]
     Active Substance: ARIPIPRAZOLE
     Indication: Schizophrenia
     Dosage: UNK, QM (400 AND SOME MILLIGRAMS)
     Route: 065

REACTIONS (6)
  - Skin injury [Unknown]
  - Injection site scar [Unknown]
  - Tissue injury [Unknown]
  - Muscle injury [Unknown]
  - Injection site mass [Unknown]
  - Refusal of treatment by patient [Unknown]
